FAERS Safety Report 9205006 (Version 1)
Quarter: 2013Q1

REPORT INFORMATION
  Report Type: Spontaneous
  Country: US (occurrence: None)
  Receive Date: 20120709
  Receipt Date: 20120709
  Transmission Date: 20140127
  Serious: No
  Sender: FDA-Public Use
  Company Number: 2012HGS-003398

PATIENT
  Age: 31 Year
  Sex: Female
  Weight: 58.51 kg

DRUGS (4)
  1. BENLYSTA [Suspect]
     Indication: SYSTEMIC LUPUS ERYTHEMATOSUS
     Dosage: 1IN 14D INTRAVENOUS DRIP
     Dates: start: 20120312
  2. ZEBETA (BISOPROLOL FUMARATE) (BISOPROLOL FUMARATE) [Concomitant]
  3. PREDNISONE (PREDNISONE) (PREDNISONE) [Concomitant]
  4. QVAR (BECLOMETASONE DIPROPIONATE) (BECLOMETASONE DIPROPIONATE) [Concomitant]

REACTIONS (1)
  - Rhinorrhoea [None]
